FAERS Safety Report 15906632 (Version 1)
Quarter: 2019Q1

REPORT INFORMATION
  Report Type: Spontaneous
  Country: US (occurrence: US)
  Receive Date: 20190204
  Receipt Date: 20190204
  Transmission Date: 20190417
  Serious: No
  Sender: FDA-Public Use
  Company Number: US-SA-2019SA027603

PATIENT

DRUGS (7)
  1. MORPHINE [Concomitant]
     Active Substance: MORPHINE
  2. KEVZARA [Suspect]
     Active Substance: SARILUMAB
  3. CERTOLIZUMAB [Concomitant]
     Active Substance: CERTOLIZUMAB
  4. MYCOPHENOLATE [Concomitant]
     Active Substance: MYCOPHENOLIC ACID
  5. OXYCODONE [Concomitant]
     Active Substance: OXYCODONE
  6. TACROLIMUS. [Concomitant]
     Active Substance: TACROLIMUS
  7. METHOTREXATE. [Concomitant]
     Active Substance: METHOTREXATE

REACTIONS (1)
  - Injection site reaction [Unknown]
